FAERS Safety Report 18570385 (Version 1)
Quarter: 2020Q4

REPORT INFORMATION
  Report Type: Report from Study
  Country: AU (occurrence: AU)
  Receive Date: 20201202
  Receipt Date: 20201202
  Transmission Date: 20210114
  Serious: Yes (Other)
  Sender: FDA-Public Use
  Company Number: AU-GW PHARMA-201803AUGW0193

PATIENT

DRUGS (13)
  1. EPIDIOLEX [Suspect]
     Active Substance: CANNABIDIOL
     Dosage: 5 MG/KG, 226.5 MILLIGRAM, QD
     Route: 048
     Dates: start: 20180130, end: 20180202
  2. EPILIM [Suspect]
     Active Substance: VALPROATE SODIUM
     Dosage: 700 MILLIGRAM, BID
     Route: 048
     Dates: start: 20180126, end: 20180130
  3. HYPNOVEL [Concomitant]
     Active Substance: MIDAZOLAM
     Indication: TUBEROUS SCLEROSIS COMPLEX
     Dosage: 5-10 MG
     Route: 002
     Dates: start: 20100303
  4. EPIDIOLEX [Suspect]
     Active Substance: CANNABIDIOL
     Indication: TUBEROUS SCLEROSIS COMPLEX
     Dosage: 25 MG/KG, 1132 MILLIGRAM, QD
     Route: 048
     Dates: start: 20171222, end: 20180122
  5. EPILIM [Suspect]
     Active Substance: VALPROATE SODIUM
     Dosage: 200 MILLIGRAM, BID
     Route: 048
     Dates: start: 20180317, end: 20180319
  6. EPIDIOLEX [Suspect]
     Active Substance: CANNABIDIOL
     Dosage: 25 MG/KG, 1125 MILLIGRAM, QD
     Route: 048
     Dates: start: 20180216, end: 20180327
  7. KEPPRA [Concomitant]
     Active Substance: LEVETIRACETAM
     Indication: TUBEROUS SCLEROSIS COMPLEX
     Dosage: 1000 MILLIGRAM, BID
     Route: 048
     Dates: start: 20091115
  8. LAMICTAL [Concomitant]
     Active Substance: LAMOTRIGINE
     Indication: TUBEROUS SCLEROSIS COMPLEX
     Dosage: 100 MILLIGRAM, BID
     Route: 048
     Dates: start: 20100215
  9. EPILIM [Suspect]
     Active Substance: VALPROATE SODIUM
     Indication: TUBEROUS SCLEROSIS COMPLEX
     Dosage: 1000 MILLIGRAM, BID
     Route: 048
     Dates: start: 20091115, end: 20180126
  10. EPIDIOLEX [Suspect]
     Active Substance: CANNABIDIOL
     Dosage: 5 MG/KG, 226.5 MILLIGRAM, QD
     Route: 048
     Dates: start: 20180407
  11. EPIDIOLEX [Suspect]
     Active Substance: CANNABIDIOL
     Dosage: DOSE TITRATING UP TO 25MG/KG, 1125 MILLIGRAM, QD
     Route: 048
     Dates: start: 20180202, end: 20180216
  12. EPILIM [Suspect]
     Active Substance: VALPROATE SODIUM
     Dosage: 500 MILLIGRAM, BID
     Route: 048
     Dates: start: 20180130, end: 20180317
  13. EPILIM [Suspect]
     Active Substance: VALPROATE SODIUM
     Dosage: 1000 MILLIGRAM, BID
     Route: 048
     Dates: start: 20180327

REACTIONS (2)
  - Toxicity to various agents [Recovered/Resolved]
  - Transaminases increased [Recovered/Resolved]

NARRATIVE: CASE EVENT DATE: 20180316
